FAERS Safety Report 23856541 (Version 1)
Quarter: 2024Q2

REPORT INFORMATION
  Report Type: Other
  Country: US (occurrence: None)
  Receive Date: 20240515
  Receipt Date: 20240515
  Transmission Date: 20240715
  Serious: Yes (Other)
  Sender: FDA-Public Use
  Company Number: US-ROCHE-3561858

PATIENT
  Age: 77 Year
  Sex: Female

DRUGS (3)
  1. ROZLYTREK [Suspect]
     Active Substance: ENTRECTINIB
     Indication: Lung neoplasm malignant
     Dosage: TAKE 2 CAPSULE(S) BY MOUTH EVERY DAY ON DAYS 1-28.
     Route: 048
  2. ROZLYTREK [Suspect]
     Active Substance: ENTRECTINIB
     Indication: Malignant lymphoid neoplasm
  3. ROZLYTREK [Suspect]
     Active Substance: ENTRECTINIB
     Indication: Seasonal allergy

REACTIONS (1)
  - Brain cancer metastatic [Unknown]
